FAERS Safety Report 8651997 (Version 3)
Quarter: 2012Q4

REPORT INFORMATION
  Report Type: 
  Country: US (occurrence: US)
  Receive Date: 20120706
  Receipt Date: 20121123
  Transmission Date: 20130627
  Serious: Yes (Disabling, Other)
  Sender: FDA-Public Use
  Company Number: US-PFIZER INC-2012159663

PATIENT
  Age: 52 Year
  Sex: Male
  Weight: 100 kg

DRUGS (4)
  1. NEURONTIN [Suspect]
     Indication: MULTIPLE SCLEROSIS
     Dosage: 1600 mg, 3x/day
     Route: 048
     Dates: start: 2002, end: 2009
  2. NEURONTIN [Suspect]
     Dosage: 400 mg, 3x/day
     Dates: start: 2009, end: 2009
  3. NEURONTIN [Suspect]
     Dosage: unknown dose three times a day
     Dates: start: 2009, end: 2009
  4. HYDROCODONE [Concomitant]
     Indication: BACK INJURY
     Dosage: UNK

REACTIONS (1)
  - Multiple sclerosis [Unknown]
